FAERS Safety Report 7807281-2 (Version None)
Quarter: 2011Q4

REPORT INFORMATION
  Report Type: 
  Country: None (occurrence: None)
  Receive Date: 20111011
  Receipt Date: 20111007
  Transmission Date: 20120403
  Serious: Yes (Hospitalization)
  Sender: FDA-Public Use
  Company Number: IT-PURDUE-GBR-2011-0008835

PATIENT
  Sex: Female

DRUGS (3)
  1. MATRIFEN [Suspect]
     Indication: BACK PAIN
     Dosage: UNK
     Route: 062
     Dates: start: 20110728, end: 20110901
  2. OXYCODONE HYDROCHLORIDE [Suspect]
     Dosage: 50 MG, DAILY
     Route: 048
     Dates: start: 20110405, end: 20110727
  3. OXYCODONE HYDROCHLORIDE [Suspect]
     Indication: BACK PAIN
     Dosage: 40 MG, BID
     Route: 048
     Dates: start: 20110902, end: 20110909

REACTIONS (2)
  - CONSTIPATION [None]
  - FAECALOMA [None]
